FAERS Safety Report 4296411-8 (Version None)
Quarter: 2004Q1

REPORT INFORMATION
  Report Type: 
  Country: None (occurrence: None)
  Receive Date: 20040213
  Receipt Date: 20040213
  Transmission Date: 20041129
  Serious: Yes (Hospitalization, Other)
  Sender: FDA-Public Use
  Company Number: None

PATIENT
  Age: 30 Year
  Sex: Female
  Weight: 62.1428 kg

DRUGS (1)
  1. FEMARA [Suspect]
     Indication: INFERTILITY
     Dosage: 2.5MG QD ORAL
     Route: 048
     Dates: start: 20031001, end: 20031005

REACTIONS (3)
  - DEMYELINATION [None]
  - NERVOUS SYSTEM DISORDER [None]
  - OPHTHALMOPLEGIA [None]
